FAERS Safety Report 4520673-2 (Version None)
Quarter: 2004Q4

REPORT INFORMATION
  Report Type: 
  Country: None (occurrence: None)
  Receive Date: 20041207
  Receipt Date: 20041125
  Transmission Date: 20050328
  Serious: Yes (Hospitalization)
  Sender: FDA-Public Use
  Company Number: DE-MERCK-0411DEU00515

PATIENT
  Sex: Male

DRUGS (1)
  1. PROSCAR [Suspect]
     Route: 048
     Dates: start: 20020101

REACTIONS (3)
  - BLOOD ALKALINE PHOSPHATASE INCREASED [None]
  - MEDICATION ERROR [None]
  - SEMINOMA [None]
